FAERS Safety Report 21177967 (Version 26)
Quarter: 2023Q1

REPORT INFORMATION
  Report Type: Report from Study
  Country: CO (occurrence: None)
  Receive Date: 20220805
  Receipt Date: 20230106
  Transmission Date: 20230417
  Serious: Yes (Hospitalization)
  Sender: FDA-Public Use
  Company Number: CO-Eisai Medical Research-EC-2022-120516

PATIENT
  Age: 67 Year
  Sex: Female
  Weight: 54.5 kg

DRUGS (24)
  1. LENVATINIB [Suspect]
     Active Substance: LENVATINIB
     Indication: Oesophageal adenocarcinoma
     Dosage: STARTING DOSE AT 8 MG, FLUCTUATED DOSAGE
     Route: 048
     Dates: start: 20220614, end: 20220728
  2. LENVATINIB [Suspect]
     Active Substance: LENVATINIB
     Indication: Adenocarcinoma gastric
     Route: 048
     Dates: start: 20220729, end: 20220729
  3. LENVATINIB [Suspect]
     Active Substance: LENVATINIB
     Indication: Human epidermal growth factor receptor negative
  4. PEMBROLIZUMAB [Suspect]
     Active Substance: PEMBROLIZUMAB
     Indication: Oesophageal adenocarcinoma
     Route: 041
     Dates: start: 20220614, end: 20220614
  5. PEMBROLIZUMAB [Suspect]
     Active Substance: PEMBROLIZUMAB
     Indication: Adenocarcinoma gastric
     Route: 041
     Dates: start: 20220811, end: 20220811
  6. PEMBROLIZUMAB [Suspect]
     Active Substance: PEMBROLIZUMAB
     Indication: Human epidermal growth factor receptor negative
  7. LEUCOVORIN [Suspect]
     Active Substance: LEUCOVORIN
     Indication: Oesophageal adenocarcinoma
     Route: 042
     Dates: start: 20220614, end: 20220721
  8. LEUCOVORIN [Suspect]
     Active Substance: LEUCOVORIN
     Indication: Adenocarcinoma gastric
     Route: 042
     Dates: start: 20220811, end: 20220811
  9. LEUCOVORIN [Suspect]
     Active Substance: LEUCOVORIN
     Indication: Human epidermal growth factor receptor negative
     Route: 042
     Dates: start: 20220913, end: 20220927
  10. OXALIPLATIN [Suspect]
     Active Substance: OXALIPLATIN
     Indication: Oesophageal adenocarcinoma
     Route: 042
     Dates: start: 20220614, end: 20220721
  11. OXALIPLATIN [Suspect]
     Active Substance: OXALIPLATIN
     Indication: Adenocarcinoma gastric
     Route: 042
     Dates: start: 20220811, end: 20220811
  12. OXALIPLATIN [Suspect]
     Active Substance: OXALIPLATIN
     Indication: Human epidermal growth factor receptor negative
     Route: 042
     Dates: start: 20220913, end: 20220927
  13. FLUOROURACIL [Suspect]
     Active Substance: FLUOROURACIL
     Indication: Oesophageal adenocarcinoma
     Route: 040
     Dates: start: 20220614, end: 20220721
  14. FLUOROURACIL [Suspect]
     Active Substance: FLUOROURACIL
     Indication: Adenocarcinoma gastric
     Route: 042
     Dates: start: 20220614, end: 20220723
  15. FLUOROURACIL [Suspect]
     Active Substance: FLUOROURACIL
     Indication: Human epidermal growth factor receptor negative
     Route: 040
     Dates: start: 20220811, end: 20220811
  16. FLUOROURACIL [Suspect]
     Active Substance: FLUOROURACIL
     Route: 042
     Dates: start: 20220811, end: 20220813
  17. FLUOROURACIL [Suspect]
     Active Substance: FLUOROURACIL
     Route: 040
     Dates: start: 20220913, end: 20220927
  18. FLUOROURACIL [Suspect]
     Active Substance: FLUOROURACIL
     Route: 042
     Dates: start: 20220913, end: 20220929
  19. DEXAMETHASONE [Concomitant]
     Active Substance: DEXAMETHASONE
     Dates: start: 20220721, end: 20220721
  20. FOSAPREPITANT DIMEGLUMINE [Concomitant]
     Active Substance: FOSAPREPITANT DIMEGLUMINE
     Dates: start: 20220721, end: 20220721
  21. ONDANSETRON [Concomitant]
     Active Substance: ONDANSETRON
     Dates: start: 20220721, end: 20220721
  22. PREDNISONE [Concomitant]
     Active Substance: PREDNISONE
     Dates: start: 20220712, end: 20220719
  23. METOCLOPRAMIDE [Concomitant]
     Active Substance: METOCLOPRAMIDE
     Dates: start: 20220712, end: 20220719
  24. SODIUM CHLORIDE [Concomitant]
     Active Substance: SODIUM CHLORIDE
     Dates: start: 20220721, end: 20220721

REACTIONS (2)
  - Pulmonary embolism [Not Recovered/Not Resolved]
  - Febrile neutropenia [Recovered/Resolved]

NARRATIVE: CASE EVENT DATE: 20220727
